FAERS Safety Report 22657770 (Version 1)
Quarter: 2023Q2

REPORT INFORMATION
  Report Type: Spontaneous
  Country: IE (occurrence: IE)
  Receive Date: 20230630
  Receipt Date: 20230630
  Transmission Date: 20230722
  Serious: Yes (Other)
  Sender: FDA-Public Use
  Company Number: IE-BAXTER-2023BAX024918

PATIENT
  Age: 71 Year
  Sex: Female

DRUGS (2)
  1. ACETAMINOPHEN [Interacting]
     Active Substance: ACETAMINOPHEN
     Indication: Analgesic therapy
     Dosage: 1 G FOUR TIMES DAILY ((REGIMEN CONTINUED FOR 2 WEEKS WITH AN APPROPRIATE RESPONSE CLINICALLY AND BIO
     Route: 042
  2. FLUCLOXACILLIN [Interacting]
     Active Substance: FLUCLOXACILLIN
     Indication: Staphylococcal infection
     Dosage: 2 G 4 HOURLY (REGIMEN CONTINUED FOR 2 WEEKS WITH AN APPROPRIATE RESPONSE CLINICALLY AND BIOCHEMICALL
     Route: 065

REACTIONS (10)
  - Pyroglutamic acidosis [Recovered/Resolved]
  - Metabolic acidosis [Recovered/Resolved]
  - Nausea [Recovered/Resolved]
  - Vomiting [Recovered/Resolved]
  - Hypotension [Recovered/Resolved]
  - Dyspnoea [Recovered/Resolved]
  - Urine output decreased [Recovered/Resolved]
  - Blood creatine increased [Recovered/Resolved]
  - Acute kidney injury [Recovered/Resolved]
  - Drug interaction [Unknown]
